FAERS Safety Report 8925987 (Version 2)
Quarter: 2013Q1

REPORT INFORMATION
  Report Type: Spontaneous
  Country: DE (occurrence: DE)
  Receive Date: 20121126
  Receipt Date: 20130130
  Transmission Date: 20140127
  Serious: Yes (Other)
  Sender: FDA-Public Use
  Company Number: PHHY2012DE107233

PATIENT
  Sex: Female
  Weight: 75 kg

DRUGS (2)
  1. AFINITOR [Suspect]
     Indication: BREAST CANCER
     Dosage: 10 MG, DAILY
     Route: 048
     Dates: start: 20120808, end: 20121030
  2. EXEMESTANE [Concomitant]
     Indication: BREAST CANCER
     Dosage: UNK
     Dates: start: 2012

REACTIONS (2)
  - Skin ulcer [Recovered/Resolved]
  - Breast pain [Recovered/Resolved]
